FAERS Safety Report 8954606 (Version 1)
Quarter: 2012Q4

REPORT INFORMATION
  Report Type: Spontaneous
  Country: US (occurrence: None)
  Receive Date: 20121205
  Receipt Date: 20121205
  Transmission Date: 20130627
  Serious: No
  Sender: FDA-Public Use
  Company Number: None

PATIENT
  Age: 22 Year
  Sex: Male
  Weight: 87 kg

DRUGS (1)
  1. IOPAMIDOL [Suspect]
     Indication: CT SCAN
     Dosage: 130mL IV Infusion
     Route: 042
     Dates: start: 20121023

REACTIONS (9)
  - Flushing [None]
  - Flushing [None]
  - Flushing [None]
  - Hyperhidrosis [None]
  - Sneezing [None]
  - Paraesthesia [None]
  - Chills [None]
  - Feeling cold [None]
  - Somnolence [None]
